FAERS Safety Report 22522341 (Version 1)
Quarter: 2023Q2

REPORT INFORMATION
  Report Type: Report from Study
  Country: EG (occurrence: EG)
  Receive Date: 20230605
  Receipt Date: 20230605
  Transmission Date: 20230721
  Serious: Yes (Hospitalization, Other)
  Sender: FDA-Public Use
  Company Number: EG-002147023-NVSC2023EG123039

PATIENT
  Age: 73 Year
  Sex: Female

DRUGS (8)
  1. ENTRESTO [Suspect]
     Active Substance: SACUBITRIL\VALSARTAN
     Indication: Cardiac failure
     Dosage: 50 MG, BID
     Route: 048
     Dates: start: 20220215
  2. DAPAGLIFLOZIN [Suspect]
     Active Substance: DAPAGLIFLOZIN
     Indication: Diabetes mellitus
     Dosage: 1 DOSAGE FORM, QD (AFTER DISCHARGE FROM THE HOSPITAL)
     Route: 048
     Dates: start: 20220215, end: 20230514
  3. DAPAGLIFLOZIN [Suspect]
     Active Substance: DAPAGLIFLOZIN
     Indication: Ejection fraction decreased
  4. VASTAREL [Concomitant]
     Active Substance: TRIMETAZIDINE DIHYDROCHLORIDE
     Indication: Heart rate abnormal
     Dosage: 1 DOSAGE FORM, BID
     Route: 048
     Dates: start: 20220215
  5. NAFRONYL [Concomitant]
     Active Substance: NAFRONYL
     Indication: Vascular insufficiency
     Dosage: 1 DOSAGE FORM, BID
     Route: 048
     Dates: start: 20220215
  6. ELIQUIS [Concomitant]
     Active Substance: APIXABAN
     Indication: Thrombosis
     Dosage: 1 DOSAGE FORM, BID
     Route: 048
     Dates: start: 20220215
  7. CRESTOR [Concomitant]
     Active Substance: ROSUVASTATIN CALCIUM
     Indication: Blood cholesterol increased
     Dosage: 1 DOSAGE FORM, QD (AT NIGHT)
     Route: 048
     Dates: start: 20220215
  8. DIFLUCAN [Concomitant]
     Active Substance: FLUCONAZOLE
     Indication: Urinary tract infection
     Dosage: UNK UNK, BID (IV INFUSION, FORMULATION: VIALS) (START DATE: 01 MAY 2023 OR 02 MAY 2023)
     Route: 065
     Dates: start: 202305, end: 20230514

REACTIONS (5)
  - Urinary tract infection [Not Recovered/Not Resolved]
  - Movement disorder [Recovering/Resolving]
  - Dyspnoea [Recovering/Resolving]
  - Fatigue [Recovering/Resolving]
  - Candida infection [Not Recovered/Not Resolved]

NARRATIVE: CASE EVENT DATE: 20230425
